FAERS Safety Report 7519988-5 (Version None)
Quarter: 2011Q2

REPORT INFORMATION
  Report Type: 
  Country: None (occurrence: None)
  Receive Date: 20110602
  Receipt Date: 20110531
  Transmission Date: 20111010
  Serious: Yes (Hospitalization, Other)
  Sender: FDA-Public Use
  Company Number: FR-BRISTOL-MYERS SQUIBB COMPANY-15676745

PATIENT
  Age: 75 Year
  Sex: Male

DRUGS (3)
  1. METFFORMIN HYDROCHLORIDE [Suspect]
     Indication: TYPE 2 DIABETES MELLITUS
  2. DIAMICRON [Suspect]
     Indication: TYPE 2 DIABETES MELLITUS
  3. ONGLYZA [Suspect]
     Indication: TYPE 2 DIABETES MELLITUS
     Route: 048
     Dates: end: 20110409

REACTIONS (2)
  - GASTROINTESTINAL DISORDER [None]
  - POLYMYALGIA RHEUMATICA [None]
